FAERS Safety Report 9402137 (Version 1)
Quarter: 2013Q3

REPORT INFORMATION
  Report Type: Spontaneous
  Country: US (occurrence: US)
  Receive Date: 20130716
  Receipt Date: 20130716
  Transmission Date: 20140515
  Serious: No
  Sender: FDA-Public Use
  Company Number: US-GLAXOSMITHKLINE-A0983124A

PATIENT
  Sex: Male

DRUGS (2)
  1. NICORETTE MINIS MINT 4 MG [Suspect]
     Indication: EX-TOBACCO USER
     Route: 002
  2. NIQUITIN MINI LOZENGES [Concomitant]
     Route: 002

REACTIONS (6)
  - Nicotine dependence [Not Recovered/Not Resolved]
  - Intentional drug misuse [Unknown]
  - Tension [Not Recovered/Not Resolved]
  - Anxiety [Not Recovered/Not Resolved]
  - Irritability [Not Recovered/Not Resolved]
  - Drug administration error [Unknown]
